FAERS Safety Report 25235227 (Version 1)
Quarter: 2025Q2

REPORT INFORMATION
  Report Type: Report from Study
  Country: US (occurrence: US)
  Receive Date: 20250424
  Receipt Date: 20250424
  Transmission Date: 20250717
  Serious: Yes (Hospitalization, Other)
  Sender: TAKEDA
  Company Number: US-TAKEDA-2025TUS038204

PATIENT
  Sex: Female

DRUGS (1)
  1. VEDOLIZUMAB [Suspect]
     Active Substance: VEDOLIZUMAB
     Indication: Crohn^s disease

REACTIONS (19)
  - Osteonecrosis [Unknown]
  - Inappropriate antidiuretic hormone secretion [Unknown]
  - Cardiac failure congestive [Unknown]
  - Cholecystitis acute [Unknown]
  - Escherichia sepsis [Unknown]
  - Atrial fibrillation [Unknown]
  - Ischaemic cardiomyopathy [Unknown]
  - Upper gastrointestinal haemorrhage [Unknown]
  - Pneumonia [Unknown]
  - Large intestinal ulcer [Unknown]
  - Coronary artery disease [Unknown]
  - Diarrhoea [Unknown]
  - Decreased appetite [Unknown]
  - Wound [Unknown]
  - Discomfort [Unknown]
  - Nausea [Unknown]
  - Appetite disorder [Unknown]
  - Weight decreased [Unknown]
  - Lipase increased [Unknown]
